FAERS Safety Report 9346338 (Version 1)
Quarter: 2013Q2

REPORT INFORMATION
  Report Type: Spontaneous
  Country: FR (occurrence: FR)
  Receive Date: 20130613
  Receipt Date: 20130613
  Transmission Date: 20140414
  Serious: Yes (Hospitalization, Other)
  Sender: FDA-Public Use
  Company Number: FR-ALLERGAN-1210416US

PATIENT
  Age: 31 Year
  Sex: Female

DRUGS (5)
  1. TROSPIUM CHLORIDE UNK [Suspect]
     Indication: PRODUCT USED FOR UNKNOWN INDICATION
     Dosage: 20 MG, UNK
  2. FUROSEMIDE [Concomitant]
     Indication: PARAPLEGIA
  3. POTASSIUM [Concomitant]
     Indication: PARAPLEGIA
  4. NEUROTIN [Concomitant]
     Indication: PARAPLEGIA
  5. SYNTOCINON [Concomitant]
     Dosage: UNK
     Dates: start: 201211, end: 201211

REACTIONS (2)
  - Haemorrhage in pregnancy [Recovered/Resolved]
  - Pregnancy [Recovered/Resolved]
